FAERS Safety Report 4896356-6 (Version None)
Quarter: 2006Q1

REPORT INFORMATION
  Report Type: 
  Country: None (occurrence: None)
  Receive Date: 20060131
  Receipt Date: 20060113
  Transmission Date: 20060701
  Serious: Yes (Hospitalization)
  Sender: FDA-Public Use
  Company Number: PHHO2006KR01120

PATIENT
  Age: 71 Year
  Sex: Female

DRUGS (5)
  1. METOPROLOL [Concomitant]
  2. FRUSEMIDE [Concomitant]
  3. ALDACTONE [Concomitant]
     Indication: CARDIAC FAILURE CONGESTIVE
  4. AMLODIPINE [Concomitant]
     Indication: HYPERTENSION
     Dosage: 5 MG
  5. VALSARTAN [Suspect]
     Indication: HYPERTENSION
     Dosage: 160 MG

REACTIONS (2)
  - HYPERKALAEMIA [None]
  - SINUS ARREST [None]
